FAERS Safety Report 11802595 (Version 4)
Quarter: 2016Q4

REPORT INFORMATION
  Report Type: Spontaneous
  Country: US (occurrence: US)
  Receive Date: 20151204
  Receipt Date: 20161118
  Transmission Date: 20170206
  Serious: Yes (Hospitalization, Congenital Anomaly, Other)
  Sender: FDA-Public Use
  Company Number: PHEH2015US025160

PATIENT
  Sex: Female

DRUGS (2)
  1. ZOFRAN [Suspect]
     Active Substance: ONDANSETRON HYDROCHLORIDE
     Indication: FOETAL EXPOSURE DURING PREGNANCY
     Dosage: MOTHER DOSE: 04 MG PER DAY (QD)
     Route: 064
  2. ZOFRAN [Suspect]
     Active Substance: ONDANSETRON HYDROCHLORIDE
     Indication: FOETAL EXPOSURE DURING PREGNANCY
     Dosage: UNK
     Route: 064

REACTIONS (14)
  - Deformity [Unknown]
  - Ventricular septal defect [Recovering/Resolving]
  - Emotional distress [Unknown]
  - Quality of life decreased [Unknown]
  - Foetal exposure during pregnancy [Unknown]
  - Pain [Unknown]
  - Upper respiratory tract infection [Unknown]
  - Anxiety [Unknown]
  - Heart disease congenital [Unknown]
  - Left-to-right cardiac shunt [Unknown]
  - Injury [Unknown]
  - Anhedonia [Unknown]
  - Ear pain [Unknown]
  - Congenital anomaly [Unknown]
